FAERS Safety Report 7597705-0 (Version None)
Quarter: 2011Q3

REPORT INFORMATION
  Report Type: 
  Country: None (occurrence: None)
  Receive Date: 20110708
  Receipt Date: 20110630
  Transmission Date: 20111222
  Serious: Yes (Death)
  Sender: FDA-Public Use
  Company Number: US-GLAXOSMITHKLINE-A0927023A

PATIENT
  Age: 80 Year
  Sex: Male

DRUGS (1)
  1. REQUIP XL [Suspect]
     Indication: PARKINSON'S DISEASE
     Dosage: 8MG UNKNOWN
     Route: 065
     Dates: start: 20081201, end: 20110425

REACTIONS (2)
  - MALAISE [None]
  - PARKINSON'S DISEASE [None]
